FAERS Safety Report 5525413-6 (Version None)
Quarter: 2007Q4

REPORT INFORMATION
  Report Type: 
  Country: None (occurrence: None)
  Receive Date: 20071120
  Receipt Date: 20071107
  Transmission Date: 20080405
  Serious: Yes (Other)
  Sender: FDA-Public Use
  Company Number: TPA2007A02291

PATIENT
  Age: 44 Year
  Sex: Female

DRUGS (4)
  1. ROZEREM [Suspect]
     Dosage: 240 MG, 30 IN 1 D, PER ORAL
     Route: 048
  2. ACETAMINOPHEN/OXYZIDE (PARACETAMOL, OXYCODONE HYDROCHLORIDE) (TABLETS) [Suspect]
     Dosage: 50 IN 1 D, PER ORAL
     Route: 048
  3. ESCITALOPRAM OXALATE [Concomitant]
  4. ASPIRIN [Suspect]
     Dosage: PER ORAL
     Route: 048

REACTIONS (11)
  - AGITATION [None]
  - CONFUSIONAL STATE [None]
  - DRUG TOXICITY [None]
  - HYPERREFLEXIA [None]
  - HYPERTENSION [None]
  - MULTIPLE DRUG OVERDOSE INTENTIONAL [None]
  - SEROTONIN SYNDROME [None]
  - SOMNOLENCE [None]
  - SUICIDAL BEHAVIOUR [None]
  - TACHYCARDIA [None]
  - VOMITING [None]
